FAERS Safety Report 12480264 (Version 1)
Quarter: 2016Q2

REPORT INFORMATION
  Report Type: Spontaneous
  Country: US (occurrence: US)
  Receive Date: 20160620
  Receipt Date: 20160620
  Transmission Date: 20160815
  Serious: Yes (Other)
  Sender: FDA-Public Use
  Company Number: US-JNJFOC-20160522771

PATIENT
  Age: 82 Year
  Sex: Female
  Weight: 70.76 kg

DRUGS (2)
  1. HYDROCHLOROTHIAZIDE. [Concomitant]
     Active Substance: HYDROCHLOROTHIAZIDE
     Route: 065
  2. LEVAQUIN [Suspect]
     Active Substance: LEVOFLOXACIN
     Indication: BRONCHITIS
     Route: 048
     Dates: start: 201512, end: 201601

REACTIONS (1)
  - Tendon rupture [Recovering/Resolving]

NARRATIVE: CASE EVENT DATE: 201603
